FAERS Safety Report 5647042-6 (Version None)
Quarter: 2008Q1

REPORT INFORMATION
  Report Type: 
  Country: None (occurrence: None)
  Receive Date: 20080131
  Receipt Date: 20071130
  Transmission Date: 20080703
  Serious: Yes (Hospitalization, Other)
  Sender: FDA-Public Use
  Company Number: 163-21880-07100869

PATIENT
  Age: 77 Year
  Sex: Male

DRUGS (2)
  1. REVLIMID [Suspect]
     Indication: LYMPHOMA
     Dosage: 5 MG, ONCE DAILY FOR 28 DAYS, ORAL
     Route: 048
  2. REVLIMID [Suspect]
     Dosage: 10 MG, DAILY FOR 28 DAYS, ORAL
     Route: 048
     Dates: start: 20070914, end: 20071004

REACTIONS (9)
  - BLOOD POTASSIUM DECREASED [None]
  - DIARRHOEA [None]
  - DYSPNOEA [None]
  - MUSCULAR WEAKNESS [None]
  - PNEUMONIA [None]
  - PYREXIA [None]
  - RED BLOOD CELL COUNT DECREASED [None]
  - WEIGHT DECREASED [None]
  - WHITE BLOOD CELL COUNT DECREASED [None]
